FAERS Safety Report 10888455 (Version 2)
Quarter: 2019Q2

REPORT INFORMATION
  Report Type: Report from Study
  Country: US (occurrence: US)
  Receive Date: 20150305
  Receipt Date: 20190401
  Transmission Date: 20190711
  Serious: Yes (Hospitalization, Other)
  Sender: FDA-Public Use
  Company Number: US-SA-2014SA069692

PATIENT
  Age: 67 Year
  Sex: Female

DRUGS (1)
  1. TERIFLUNOMIDE. [Suspect]
     Active Substance: TERIFLUNOMIDE
     Indication: MULTIPLE SCLEROSIS
     Dosage: 14 MG,QD
     Route: 048
     Dates: start: 20130509

REACTIONS (9)
  - Stress [Unknown]
  - Gait disturbance [Unknown]
  - Labyrinthitis [Unknown]
  - Rehabilitation therapy [Unknown]
  - Feeling abnormal [Unknown]
  - Seasonal allergy [Not Recovered/Not Resolved]
  - Fatigue [Not Recovered/Not Resolved]
  - Upper respiratory tract infection [Unknown]
  - Dysstasia [Unknown]

NARRATIVE: CASE EVENT DATE: 201502
